FAERS Safety Report 15941740 (Version 1)
Quarter: 2019Q1

REPORT INFORMATION
  Report Type: Spontaneous
  Country: US (occurrence: US)
  Receive Date: 20190210
  Receipt Date: 20190210
  Transmission Date: 20190417
  Serious: Yes (Hospitalization)
  Sender: FDA-Public Use
  Company Number: None

PATIENT
  Age: 8 Year
  Sex: Male
  Weight: 58.5 kg

DRUGS (1)
  1. TAMIFLU OR OSELTAMIVIR 6MG/ML [Suspect]
     Active Substance: OSELTAMIVIR PHOSPHATE
     Indication: H1N1 INFLUENZA
     Dates: start: 20190203, end: 20190206

REACTIONS (1)
  - Sleep terror [None]

NARRATIVE: CASE EVENT DATE: 20190203
